FAERS Safety Report 22608266 (Version 2)
Quarter: 2023Q2

REPORT INFORMATION
  Report Type: Report from Study
  Country: JP (occurrence: JP)
  Receive Date: 20230616
  Receipt Date: 20230619
  Transmission Date: 20230722
  Serious: Yes (Death)
  Sender: FDA-Public Use
  Company Number: JP-NBI-BJ202310284

PATIENT
  Age: 92 Year
  Sex: Female

DRUGS (3)
  1. JARDIANCE [Suspect]
     Active Substance: EMPAGLIFLOZIN
     Indication: Cardiac failure chronic
     Route: 048
     Dates: start: 20220721, end: 20220806
  2. CARVEDILOL [Concomitant]
     Active Substance: CARVEDILOL
     Indication: Cardiac failure chronic
     Route: 048
     Dates: end: 20220806
  3. ENTRESTO [Concomitant]
     Active Substance: SACUBITRIL\VALSARTAN
     Indication: Cardiac failure chronic
     Route: 048
     Dates: end: 20220806

REACTIONS (1)
  - Pyelonephritis acute [Fatal]

NARRATIVE: CASE EVENT DATE: 20220801
